FAERS Safety Report 16844347 (Version 1)
Quarter: 2019Q3

REPORT INFORMATION
  Report Type: Spontaneous
  Country: US (occurrence: US)
  Receive Date: 20190924
  Receipt Date: 20190924
  Transmission Date: 20191005
  Serious: No
  Sender: FDA-Public Use
  Company Number: US-ALLERGAN-1853443US

PATIENT
  Age: 9 Year
  Sex: Female

DRUGS (3)
  1. SAPHRIS [Suspect]
     Active Substance: ASENAPINE MALEATE
     Indication: AFFECTIVE DISORDER
  2. SAPHRIS [Suspect]
     Active Substance: ASENAPINE MALEATE
     Indication: BIPOLAR DISORDER
     Dosage: UNK
     Route: 065
     Dates: start: 201810, end: 20181112
  3. SAPHRIS [Suspect]
     Active Substance: ASENAPINE MALEATE
     Indication: AUTISM SPECTRUM DISORDER

REACTIONS (1)
  - Off label use [Unknown]
